FAERS Safety Report 24964166 (Version 1)
Quarter: 2025Q1

REPORT INFORMATION
  Report Type: Spontaneous
  Country: ZA (occurrence: ZA)
  Receive Date: 20250213
  Receipt Date: 20250213
  Transmission Date: 20250409
  Serious: Yes (Hospitalization)
  Sender: AMGEN
  Company Number: ZA-SERVIER-S24018768

PATIENT
  Age: 42 Year
  Sex: Female

DRUGS (21)
  1. IVABRADINE HYDROCHLORIDE [Suspect]
     Active Substance: IVABRADINE HYDROCHLORIDE
     Indication: Angina pectoris
     Dosage: 7.5 MG  ONE TABLET  DAILY
     Route: 048
  2. AMLODIPINE BESYLATE\PERINDOPRIL ARGININE [Suspect]
     Active Substance: AMLODIPINE BESYLATE\PERINDOPRIL ARGININE
     Indication: Hypertension
     Dosage: 10/10 MG  ONE TABLET  DAILY
     Route: 048
  3. MACRODANTIN [Concomitant]
     Active Substance: NITROFURANTOIN
     Indication: Prophylaxis
     Dosage: 100 MG  ONE  CAPSULE  THREE  TIMES A  DAY
     Route: 048
  4. Sandoz co amoxyclav [Concomitant]
     Indication: Product used for unknown indication
     Dosage: 1000 MG  ONE TABLET  TWICE A  DAY
     Route: 048
  5. Lipogen [Concomitant]
     Indication: Blood cholesterol abnormal
     Dosage: 80 MG  ONE TABLET  DAILY
     Route: 048
  6. DAPAGLIFLOZIN [Concomitant]
     Active Substance: DAPAGLIFLOZIN
     Indication: Diabetes mellitus
     Dosage: 10 MG  ONE TABLET  DAILY
     Route: 048
  7. Spiractin [Concomitant]
     Indication: Hypertension
     Dosage: 25 MG  ONE TABLET  DAILY
     Route: 048
  8. CLOPIDOGREL BISULFATE [Concomitant]
     Active Substance: CLOPIDOGREL BISULFATE
     Indication: Anticoagulant therapy
     Dosage: 75 MG  ONE TABLET  DAILY
     Route: 048
  9. DOXYCYCLINE HYDROCHLORIDE [Concomitant]
     Active Substance: DOXYCYCLINE HYDROCHLORIDE
     Indication: Bacterial infection
     Dosage: 100 MG  ONE  CAPSULE  TWICE A DAY
     Route: 048
  10. FLUCONAZOLE [Concomitant]
     Active Substance: FLUCONAZOLE
     Indication: Product used for unknown indication
     Dosage: 200 MG  TWO  CAPSULES  DAILY
     Route: 048
  11. CARVEDILOL [Concomitant]
     Active Substance: CARVEDILOL
     Indication: Hypertension
     Dosage: 25 MG  HALF A  TABLET  TWICE A  DAY
     Route: 048
  12. JANUMET [Concomitant]
     Active Substance: METFORMIN HYDROCHLORIDE\SITAGLIPTIN PHOSPHATE
     Indication: Diabetes mellitus
     Dosage: 1000/50 MG  ONE TABLET  TWICE A  DAY
     Route: 048
  13. Pantocid [Concomitant]
     Indication: Ulcer
     Dosage: 40 MG  ONE TABLET  DAILY
     Route: 048
  14. VALPROATE SODIUM [Concomitant]
     Active Substance: VALPROATE SODIUM
     Indication: Epilepsy
     Dosage: 500 MG  ONE TABLET  TWICE A  DAY
     Route: 048
  15. Synaleve [Concomitant]
     Indication: Pain
     Dosage: TWO  CAPSULES  THREE  TIMES A  DAY
     Route: 048
  16. ETORICOXIB [Concomitant]
     Active Substance: ETORICOXIB
     Indication: Pain
     Dosage: 90 MG  ONE TABLET  DAILY
     Route: 048
  17. LEVOFLOXACIN [Concomitant]
     Active Substance: LEVOFLOXACIN
     Indication: Product used for unknown indication
     Dosage: 500 MG  ONE AND  HALF ONCE  A DAY
     Route: 048
  18. CEFPODOXIME PROXETIL [Concomitant]
     Active Substance: CEFPODOXIME PROXETIL
     Indication: Product used for unknown indication
     Dosage: 200 MG  ONE TABLET  TWICE A  DAY
     Route: 048
  19. ARCOXIA [Concomitant]
     Active Substance: ETORICOXIB
     Indication: Pain
     Dosage: 90 MG  ONE TABLET  DAILY
     Route: 048
  20. ZOLPIDEM TARTRATE [Concomitant]
     Active Substance: ZOLPIDEM TARTRATE
     Indication: Sleep disorder
     Dosage: 12.5 MG  ONE TABLET  AT NIGHT
     Route: 048
  21. MOXIFLOXACIN [Concomitant]
     Active Substance: MOXIFLOXACIN
     Indication: Product used for unknown indication
     Dosage: 400 MG, QD
     Route: 048

REACTIONS (2)
  - Hospitalisation [Unknown]
  - Product use issue [Recovered/Resolved]
